FAERS Safety Report 9629687 (Version 1)
Quarter: 2013Q4

REPORT INFORMATION
  Report Type: Spontaneous
  Country: GB (occurrence: GB)
  Receive Date: 20131017
  Receipt Date: 20131017
  Transmission Date: 20140711
  Serious: Yes (Life-Threatening, Disabling, Other)
  Sender: FDA-Public Use
  Company Number: GB-TEVA-437806ISR

PATIENT
  Age: 73 Year
  Sex: Female
  Weight: 54 kg

DRUGS (5)
  1. NITROFURANTOIN [Suspect]
     Indication: URINARY TRACT INFECTION
     Route: 048
     Dates: start: 20120810, end: 20130326
  2. ALENDRONATE [Concomitant]
     Indication: OSTEOPOROSIS POSTMENOPAUSAL
  3. OMEPRAZOLE [Concomitant]
  4. PARACETAMOL [Concomitant]
  5. ADCAL-D3 [Concomitant]

REACTIONS (5)
  - Pulmonary fibrosis [Recovering/Resolving]
  - Pulmonary function test decreased [Recovering/Resolving]
  - Oxygen saturation decreased [Recovering/Resolving]
  - Dyspnoea exertional [Recovering/Resolving]
  - Inflammation [Recovering/Resolving]
